FAERS Safety Report 23447299 (Version 3)
Quarter: 2024Q1

REPORT INFORMATION
  Report Type: Report from Study
  Country: MY (occurrence: None)
  Receive Date: 20240126
  Receipt Date: 20240223
  Transmission Date: 20240410
  Serious: Yes (Death, Other)
  Sender: FDA-Public Use
  Company Number: 2024A019679

PATIENT
  Sex: Female

DRUGS (1)
  1. IMFINZI [Suspect]
     Active Substance: DURVALUMAB
     Indication: Neoplasm malignant
     Dosage: 1500.0MG UNKNOWN
     Route: 042
     Dates: start: 20221115

REACTIONS (2)
  - Death [Fatal]
  - Drug ineffective [Unknown]
